FAERS Safety Report 7074376-3 (Version None)
Quarter: 2010Q4

REPORT INFORMATION
  Report Type: 
  Country: None (occurrence: None)
  Receive Date: 20101029
  Receipt Date: 20101025
  Transmission Date: 20110411
  Serious: Yes (Hospitalization, Disabling, Other)
  Sender: FDA-Public Use
  Company Number: JP-BRISTOL-MYERS SQUIBB COMPANY-15234198

PATIENT
  Age: 61 Year
  Sex: Female
  Weight: 68 kg

DRUGS (4)
  1. BARACLUDE [Suspect]
     Indication: HEPATITIS B
     Dosage: 26MAR07-06JAN08 0.5MG ONCE IN EVERY OTHER DAY 07JAN-15JUN08 0.5MG 2/WK 16JUN08 0.5MG/WK
     Route: 048
     Dates: start: 20070326
  2. NORVASC [Concomitant]
     Indication: HYPERTENSION
     Dosage: FORMULATION:TABS
     Route: 048
     Dates: end: 20100323
  3. LASIX [Concomitant]
     Indication: HYPERTENSION
     Dosage: FORMULATION:TABS
     Route: 048
     Dates: end: 20100323
  4. ALDACTONE [Concomitant]
     Indication: HYPERTENSION
     Dosage: FORMULATION:TABS
     Route: 048
     Dates: end: 20100323

REACTIONS (4)
  - BRADYKINESIA [None]
  - EPISTAXIS [None]
  - HEPATIC NEOPLASM MALIGNANT [None]
  - HYPERAMMONAEMIA [None]
